FAERS Safety Report 17246326 (Version 2)
Quarter: 2020Q1

REPORT INFORMATION
  Report Type: Spontaneous
  Country: JP (occurrence: JP)
  Receive Date: 20200108
  Receipt Date: 20200123
  Transmission Date: 20200409
  Serious: Yes (Hospitalization)
  Sender: FDA-Public Use
  Company Number: JP-PFIZER INC-2019527709

PATIENT
  Age: 64 Year
  Sex: Male
  Weight: 77 kg

DRUGS (11)
  1. JZOLOFT [Suspect]
     Active Substance: SERTRALINE HYDROCHLORIDE
     Dosage: 50 MG, DAILY
     Route: 048
     Dates: start: 20191008
  2. NIFEDIPINE L [Concomitant]
     Active Substance: NIFEDIPINE
     Indication: HYPERTENSION
     Dosage: (10) THREE TABLETS DAILY
     Dates: start: 201908
  3. TENORMIN [Concomitant]
     Active Substance: ATENOLOL
     Indication: HYPERTENSION
     Dosage: (25) TWO TABLETS DAILY
     Dates: start: 201908
  4. JZOLOFT [Suspect]
     Active Substance: SERTRALINE HYDROCHLORIDE
     Dosage: 37.5 MG, DAILY
     Route: 048
     Dates: start: 20110623, end: 20110802
  5. JZOLOFT [Suspect]
     Active Substance: SERTRALINE HYDROCHLORIDE
     Dosage: 25 MG, DAILY
     Route: 048
     Dates: start: 20150427, end: 20191007
  6. JZOLOFT [Suspect]
     Active Substance: SERTRALINE HYDROCHLORIDE
     Dosage: 100 MG, DAILY
     Dates: start: 20191202, end: 20191210
  7. JZOLOFT [Suspect]
     Active Substance: SERTRALINE HYDROCHLORIDE
     Dosage: 25 MG, DAILY
     Route: 048
     Dates: start: 20110613, end: 20110622
  8. JZOLOFT [Suspect]
     Active Substance: SERTRALINE HYDROCHLORIDE
     Indication: DEPRESSION
     Dosage: 12.5 MG, DAILY
     Route: 048
     Dates: start: 20110607, end: 20110612
  9. JZOLOFT [Suspect]
     Active Substance: SERTRALINE HYDROCHLORIDE
     Dosage: 37.5 MG, DAILY
     Route: 048
     Dates: start: 20130104, end: 20150426
  10. JZOLOFT [Suspect]
     Active Substance: SERTRALINE HYDROCHLORIDE
     Dosage: 50 MG, DAILY
     Route: 048
     Dates: start: 20110803, end: 20130103
  11. NIFEDIPINE L [Concomitant]
     Active Substance: NIFEDIPINE
     Dosage: (10) FOUR TABLETS DAILY

REACTIONS (10)
  - Palpitations [Recovered/Resolved]
  - Renal disorder [Unknown]
  - Nausea [Unknown]
  - Overdose [Recovered/Resolved]
  - Thirst [Recovering/Resolving]
  - Hypertension [Recovered/Resolved]
  - Inappropriate antidiuretic hormone secretion [Recovered/Resolved]
  - Choking sensation [Unknown]
  - Dyspnoea [Recovered/Resolved]
  - Hyponatraemia [Recovered/Resolved]

NARRATIVE: CASE EVENT DATE: 20191125
